FAERS Safety Report 25002052 (Version 2)
Quarter: 2025Q1

REPORT INFORMATION
  Report Type: Spontaneous
  Country: US (occurrence: US)
  Receive Date: 20250224
  Receipt Date: 20250318
  Transmission Date: 20250409
  Serious: No
  Sender: JOHNSON AND JOHNSON
  Company Number: US-JNJFOC-20250139922

PATIENT
  Age: 75 Year
  Sex: Male

DRUGS (13)
  1. ERLEADA [Suspect]
     Active Substance: APALUTAMIDE
     Indication: Prostate cancer
     Route: 048
     Dates: start: 202408
  2. ORGOVYX [Suspect]
     Active Substance: RELUGOLIX
     Indication: Prostate cancer
     Route: 048
     Dates: start: 20250130
  3. ORGOVYX [Suspect]
     Active Substance: RELUGOLIX
     Route: 048
  4. ASPIRIN [Concomitant]
     Active Substance: ASPIRIN
  5. CALCIUM\VITAMIN D [Concomitant]
     Active Substance: CALCIUM\VITAMIN D
  6. CHLORELLA [CHLORELLA SPP.] [Concomitant]
  7. CHLORTHALIDONE [Concomitant]
     Active Substance: CHLORTHALIDONE
  8. COD LIVER OIL [Concomitant]
     Active Substance: COD LIVER OIL
  9. FIRMAGON [Concomitant]
     Active Substance: DEGARELIX ACETATE
  10. HYDROXYZINE [Concomitant]
     Active Substance: HYDROXYZINE HYDROCHLORIDE
  11. LIPITOR [Concomitant]
     Active Substance: ATORVASTATIN CALCIUM
  12. TAMSULOSIN [Concomitant]
     Active Substance: TAMSULOSIN
  13. VITAMIN C [Concomitant]
     Active Substance: ASCORBIC ACID

REACTIONS (5)
  - Hot flush [Unknown]
  - Rash [Unknown]
  - Urticaria [Unknown]
  - Skin exfoliation [Unknown]
  - Dry skin [Unknown]
